FAERS Safety Report 9330586 (Version 1)
Quarter: 2013Q2

REPORT INFORMATION
  Report Type: Spontaneous
  Country: US (occurrence: US)
  Receive Date: 20130605
  Receipt Date: 20130605
  Transmission Date: 20140414
  Serious: Yes (Other)
  Sender: FDA-Public Use
  Company Number: PHEH2013US012076

PATIENT
  Sex: Female

DRUGS (1)
  1. EXFORGE [Suspect]

REACTIONS (1)
  - Colon cancer [Unknown]
